FAERS Safety Report 14779185 (Version 1)
Quarter: 2018Q2

REPORT INFORMATION
  Report Type: Spontaneous
  Country: US (occurrence: US)
  Receive Date: 20180412
  Receipt Date: 20180412
  Transmission Date: 20180711
  Serious: No
  Sender: FDA-Public Use
  Company Number: None

PATIENT
  Age: 45 Year
  Sex: Female

DRUGS (1)
  1. IRON SUCROSE 200MG AMERICAN REGENT [Suspect]
     Active Substance: IRON SUCROSE
     Indication: IRON DEFICIENCY ANAEMIA
     Dosage: 200MG WEEKLY PIV
     Route: 042
     Dates: start: 20170817

REACTIONS (2)
  - Discomfort [None]
  - Peripheral swelling [None]

NARRATIVE: CASE EVENT DATE: 20170824
